FAERS Safety Report 16186677 (Version 1)
Quarter: 2019Q2

REPORT INFORMATION
  Report Type: Spontaneous
  Country: ES (occurrence: ES)
  Receive Date: 20190411
  Receipt Date: 20190411
  Transmission Date: 20190711
  Serious: Yes (Hospitalization)
  Sender: FDA-Public Use
  Company Number: PHHY2019ES082305

PATIENT
  Age: 78 Year
  Sex: Female

DRUGS (6)
  1. MEROPENEM. [Concomitant]
     Active Substance: MEROPENEM
     Indication: ABSCESS
     Dosage: 1.5 G, QD
     Route: 042
     Dates: start: 20181114, end: 20181119
  2. LINEZOLID. [Concomitant]
     Active Substance: LINEZOLID
     Indication: ABSCESS
     Dosage: 1.2 G, QD
     Route: 042
     Dates: start: 20181114, end: 20181119
  3. ALPRAZOLAM. [Concomitant]
     Active Substance: ALPRAZOLAM
     Indication: ANXIETY
     Dosage: 0.5 MG, QD
     Route: 048
     Dates: start: 201609, end: 20181212
  4. CLINDAMICINA FOSFATO [Concomitant]
     Active Substance: CLINDAMYCIN PHOSPHATE
     Dosage: 1.2 G, QD
     Route: 048
     Dates: start: 20181106, end: 20181113
  5. CLINDAMICINA FOSFATO [Concomitant]
     Active Substance: CLINDAMYCIN PHOSPHATE
     Indication: ABSCESS
     Dosage: 2.4 G, QD
     Route: 042
     Dates: start: 20181102, end: 20181105
  6. CIPROFLOXACIN. [Suspect]
     Active Substance: CIPROFLOXACIN
     Indication: ABSCESS
     Dosage: 1 G, QD
     Route: 048
     Dates: start: 20181205, end: 20181212

REACTIONS (1)
  - Clostridium difficile colitis [Recovered/Resolved]

NARRATIVE: CASE EVENT DATE: 20181215
